FAERS Safety Report 25838459 (Version 2)
Quarter: 2025Q4

REPORT INFORMATION
  Report Type: Spontaneous
  Country: JP (occurrence: JP)
  Receive Date: 20250923
  Receipt Date: 20251005
  Transmission Date: 20260117
  Serious: Yes (Death)
  Sender: NOVARTIS
  Company Number: JP-002147023-NVSJ2025JP009564

PATIENT
  Age: 75 Year
  Sex: Male
  Weight: 61 kg

DRUGS (10)
  1. LEQVIO [Suspect]
     Active Substance: INCLISIRAN SODIUM
     Indication: Low density lipoprotein increased
     Dosage: 300 MG
     Route: 058
     Dates: start: 20240924
  2. LEQVIO [Suspect]
     Active Substance: INCLISIRAN SODIUM
     Indication: Prophylaxis
     Dosage: 300 MG
     Route: 058
     Dates: start: 20250114, end: 20250114
  3. ENTRESTO [Suspect]
     Active Substance: SACUBITRIL\VALSARTAN
     Indication: Cardiac failure chronic
     Dosage: 50 MG, BID
     Route: 048
     Dates: start: 20240830
  4. ASPIRIN [Concomitant]
     Active Substance: ASPIRIN
     Indication: Prophylaxis
     Dosage: 100 NG, QD
     Route: 065
     Dates: start: 20240826
  5. CARVEDILOL [Concomitant]
     Active Substance: CARVEDILOL
     Indication: Cardiac failure chronic
     Dosage: 2.5 MG, BID
     Route: 065
     Dates: start: 20240826
  6. CRESTOR [Concomitant]
     Active Substance: ROSUVASTATIN CALCIUM
     Indication: Prophylaxis
     Dosage: 5 MG, QD
     Route: 065
     Dates: start: 20240826
  7. JARDIANCE [Concomitant]
     Active Substance: EMPAGLIFLOZIN
     Indication: Cardiac failure chronic
     Dosage: 10 MG, QD
     Route: 065
     Dates: start: 20240830
  8. VONOPRAZAN FUMARATE [Concomitant]
     Active Substance: VONOPRAZAN FUMARATE
     Indication: Prophylaxis against gastrointestinal ulcer
     Dosage: 10 MG, QD
     Route: 065
     Dates: start: 20240826
  9. EPLERENONE [Concomitant]
     Active Substance: EPLERENONE
     Indication: Cardiac failure chronic
     Dosage: 25 MG, QD
     Route: 065
     Dates: start: 20240830
  10. AZOSEMIDE [Concomitant]
     Active Substance: AZOSEMIDE
     Indication: Cardiac failure chronic
     Dosage: 15 MG, QD
     Route: 065
     Dates: start: 20240913

REACTIONS (2)
  - Myocardial ischaemia [Fatal]
  - Cardio-respiratory arrest [Fatal]

NARRATIVE: CASE EVENT DATE: 20250422
